FAERS Safety Report 9307839 (Version 1)
Quarter: 2013Q2

REPORT INFORMATION
  Report Type: Spontaneous
  Country: FR (occurrence: FR)
  Receive Date: 20130524
  Receipt Date: 20130524
  Transmission Date: 20140414
  Serious: Yes (Other)
  Sender: FDA-Public Use
  Company Number: FR-BRISTOL-MYERS SQUIBB COMPANY-18908616

PATIENT
  Age: 57 Year
  Sex: Female

DRUGS (8)
  1. BYETTA [Suspect]
     Indication: DIABETES MELLITUS
     Dosage: THEN INCREASED TO 10MCG
     Route: 058
     Dates: start: 20090406, end: 201002
  2. VICTOZA [Suspect]
     Indication: DIABETES MELLITUS
     Dosage: INTER ON 11MAY11,RESTARTED ON OCT12
     Route: 058
     Dates: start: 201002
  3. LANTUS [Concomitant]
     Indication: DIABETES MELLITUS
     Dosage: 1DF:5UI
     Route: 058
  4. GLUCOPHAGE TABS 1000 MG [Concomitant]
     Indication: DIABETES MELLITUS
     Dosage: FILM-COATED TABLET
     Route: 048
  5. TRIATEC [Concomitant]
     Dosage: 1 SCORED TABLET ORALLY IN THE MORNING
  6. APROVEL [Concomitant]
     Dosage: TABLET
     Route: 048
  7. AMLOR [Concomitant]
     Dosage: CAPSULE
     Route: 048
  8. PRAVADUAL TABS [Concomitant]
     Dosage: 1DF:1 TAB
     Route: 048

REACTIONS (1)
  - Adenocarcinoma of colon [Unknown]
